FAERS Safety Report 6797137-9 (Version None)
Quarter: 2010Q2

REPORT INFORMATION
  Report Type: 
  Country: None (occurrence: None)
  Receive Date: 20100618
  Receipt Date: 20100602
  Transmission Date: 20101027
  Serious: Yes (Other)
  Sender: FDA-Public Use
  Company Number: 2010SP030883

PATIENT
  Age: 24 Year
  Sex: Female

DRUGS (1)
  1. IMPLANON [Suspect]
     Indication: DRUG USE FOR UNKNOWN INDICATION
     Dates: start: 20090916

REACTIONS (4)
  - ABDOMINAL DISCOMFORT [None]
  - DIARRHOEA HAEMORRHAGIC [None]
  - FOOD POISONING [None]
  - VAGINAL HAEMORRHAGE [None]
